FAERS Safety Report 9841622 (Version 1)
Quarter: 2013Q4

REPORT INFORMATION
  Report Type: Spontaneous
  Country: US (occurrence: None)
  Receive Date: 20131219
  Receipt Date: 20131219
  Transmission Date: 20140711
  Serious: Yes (Hospitalization)
  Sender: FDA-Public Use
  Company Number: 163-20785-13061375

PATIENT
  Age: 85 Year
  Sex: Male
  Weight: 73.94 kg

DRUGS (1)
  1. THALOMID [Suspect]
     Indication: MYELODYSPLASTIC SYNDROME
     Dosage: 1 IN 1 D
     Route: 048
     Dates: start: 20130226

REACTIONS (3)
  - Full blood count decreased [None]
  - Constipation [None]
  - Fatigue [None]
